FAERS Safety Report 7029291-8 (Version None)
Quarter: 2010Q4

REPORT INFORMATION
  Report Type: 
  Country: None (occurrence: None)
  Receive Date: 20101005
  Receipt Date: 20100921
  Transmission Date: 20110411
  Serious: Yes (Other)
  Sender: FDA-Public Use
  Company Number: PHHY2010JP61175

PATIENT
  Age: 68 Year
  Sex: Female

DRUGS (1)
  1. ZOMETA [Suspect]
     Indication: METASTASES TO BONE
     Dosage: UNK
     Route: 041
     Dates: start: 20061001, end: 20070901

REACTIONS (8)
  - BONE DISORDER [None]
  - FISTULA [None]
  - GINGIVAL ABSCESS [None]
  - GINGIVAL SWELLING [None]
  - HAEMORRHAGE [None]
  - OSTEONECROSIS OF JAW [None]
  - PAIN [None]
  - TOOTH EXTRACTION [None]
